FAERS Safety Report 13990825 (Version 1)
Quarter: 2017Q3

REPORT INFORMATION
  Report Type: Spontaneous
  Country: US (occurrence: None)
  Receive Date: 20170920
  Receipt Date: 20170920
  Transmission Date: 20171128
  Serious: Yes (Other)
  Sender: FDA-Public Use
  Company Number: None

PATIENT
  Age: 74 Year
  Sex: Female
  Weight: 78.02 kg

DRUGS (17)
  1. WARFARIN [Concomitant]
     Active Substance: WARFARIN
  2. LASIX [Concomitant]
     Active Substance: FUROSEMIDE
  3. VITAMIN D [Concomitant]
     Active Substance: CHOLECALCIFEROL
  4. ALPHAGAN P [Concomitant]
     Active Substance: BRIMONIDINE TARTRATE
  5. METHIMAZOLE. [Concomitant]
     Active Substance: METHIMAZOLE
  6. DILTAZEM (CARDIZEM) [Concomitant]
  7. CRESTOR [Concomitant]
     Active Substance: ROSUVASTATIN CALCIUM
  8. SILDENAFIL 20MG [Suspect]
     Active Substance: SILDENAFIL
     Indication: PULMONARY ARTERIAL HYPERTENSION
     Route: 048
     Dates: start: 201611, end: 201612
  9. IRON (FERROUS SULFATE) [Concomitant]
  10. MAGNESIUM [Concomitant]
     Active Substance: MAGNESIUM
  11. SILDENAFIL 20MG [Suspect]
     Active Substance: SILDENAFIL
     Dates: start: 201701
  12. POTASSIUM CHLORIDE. [Concomitant]
     Active Substance: POTASSIUM CHLORIDE
  13. BYSTALIC [Concomitant]
  14. ALLOPURINOL. [Concomitant]
     Active Substance: ALLOPURINOL
  15. OMEPRAZOLE. [Concomitant]
     Active Substance: OMEPRAZOLE
  16. METFORMIN [Concomitant]
     Active Substance: METFORMIN HYDROCHLORIDE
  17. VITAMIN C [Concomitant]
     Active Substance: ASCORBIC ACID

REACTIONS (1)
  - Urticaria [None]

NARRATIVE: CASE EVENT DATE: 201611
